FAERS Safety Report 4887260-8 (Version None)
Quarter: 2005Q4

REPORT INFORMATION
  Report Type: 
  Country: None (occurrence: None)
  Receive Date: 20051221
  Receipt Date: 20051003
  Transmission Date: 20060501
  Serious: No
  Sender: FDA-Public Use
  Company Number: US-YAMANOUCHI-YPA20050535

PATIENT
  Age: 81 Year
  Sex: Female

DRUGS (6)
  1. VESICARE [Suspect]
     Indication: BLADDER DISORDER
     Dosage: 5 MG QD PO
     Route: 048
     Dates: start: 20050927
  2. MECLIZINE [Concomitant]
  3. LIPITOR [Concomitant]
  4. ATENOLOL [Concomitant]
  5. SYNTHROID [Concomitant]
  6. FOSAMAX [Concomitant]

REACTIONS (3)
  - ABDOMINAL PAIN [None]
  - DIARRHOEA [None]
  - DIZZINESS [None]
